FAERS Safety Report 8094333 (Version 2)
Quarter: 2012Q4

REPORT INFORMATION
  Report Type: 
  Country: GB (occurrence: GB)
  Receive Date: 20110817
  Receipt Date: 20121008
  Transmission Date: 20130627
  Serious: Yes (Other)
  Sender: FDA-Public Use
  Company Number: PHFR2011GB04674

PATIENT
  Age: 49 Year
  Sex: Male

DRUGS (2)
  1. CLOZARIL [Suspect]
     Indication: SCHIZOPHRENIA
     Route: 048
     Dates: start: 20110603
  2. CLOZARIL [Suspect]
     Route: 048
     Dates: start: 20120712

REACTIONS (5)
  - Haemoglobin increased [Unknown]
  - Circulatory collapse [Unknown]
  - Feeling abnormal [Unknown]
  - Confusional state [Unknown]
  - Platelet count decreased [Unknown]
